FAERS Safety Report 13656093 (Version 2)
Quarter: 2017Q3

REPORT INFORMATION
  Report Type: Spontaneous
  Country: FR (occurrence: FR)
  Receive Date: 20170615
  Receipt Date: 20170706
  Transmission Date: 20171127
  Serious: Yes (Hospitalization)
  Sender: FDA-Public Use
  Company Number: FR-EXELIXIS-CABO-17009459

PATIENT
  Age: 51 Year
  Sex: Male

DRUGS (8)
  1. SEROPLEX [Concomitant]
     Active Substance: ESCITALOPRAM OXALATE
  2. CABOMETYX [Suspect]
     Active Substance: CABOZANTINIB S-MALATE
     Indication: RENAL CANCER
     Dosage: 60 MG, QD
     Route: 048
     Dates: start: 20161129, end: 20170518
  3. KEPPRA [Concomitant]
     Active Substance: LEVETIRACETAM
  4. SMECTA [Concomitant]
     Active Substance: MONTMORILLONITE
  5. SOPHIDONE [Concomitant]
     Active Substance: HYDROMORPHONE HYDROCHLORIDE
  6. SOLUPRED [Concomitant]
     Active Substance: PREDNISOLONE
  7. PREDNISONE. [Concomitant]
     Active Substance: PREDNISONE
  8. TIORFAN [Concomitant]
     Active Substance: RACECADOTRIL

REACTIONS (1)
  - Ischaemic stroke [Not Recovered/Not Resolved]

NARRATIVE: CASE EVENT DATE: 20170512
